FAERS Safety Report 7681513-6 (Version None)
Quarter: 2011Q3

REPORT INFORMATION
  Report Type: 
  Country: None (occurrence: None)
  Receive Date: 20110812
  Receipt Date: 20110810
  Transmission Date: 20111222
  Serious: Yes (Death)
  Sender: FDA-Public Use
  Company Number: PHHY2011RU71602

PATIENT
  Age: 56 Year
  Sex: Male

DRUGS (5)
  1. DIGOXIN [Concomitant]
  2. FELODIPINE [Concomitant]
  3. DIOVAN [Suspect]
     Dosage: 1 DF, DAILY
  4. WARFARIN SODIUM [Concomitant]
     Dosage: 4.5-5.5 TABLETS
  5. NOOTROPIL [Concomitant]

REACTIONS (5)
  - SOMNOLENCE [None]
  - APHASIA [None]
  - INTERNATIONAL NORMALISED RATIO INCREASED [None]
  - ARTERIOSCLEROSIS CORONARY ARTERY [None]
  - OEDEMA PERIPHERAL [None]
